FAERS Safety Report 11200113 (Version 4)
Quarter: 2015Q3

REPORT INFORMATION
  Report Type: Report from Study
  Country: AU (occurrence: AU)
  Receive Date: 20150618
  Receipt Date: 20150901
  Transmission Date: 20151125
  Serious: Yes (Death, Life-Threatening, Hospitalization, Other)
  Sender: FDA-Public Use
  Company Number: AU-GILEAD-2015-0158755

PATIENT
  Age: 53 Year
  Sex: Male

DRUGS (12)
  1. FUROSEMIDE. [Suspect]
     Active Substance: FUROSEMIDE
     Dosage: 40 MG, ONCE
     Route: 065
  2. DACLATASVIR. [Suspect]
     Active Substance: DACLATASVIR
     Indication: HEPATITIS C
     Dosage: 60 MG, QD
     Route: 065
     Dates: start: 20150519, end: 20150803
  3. RIFAXIMIN [Concomitant]
     Active Substance: RIFAXIMIN
  4. LACTULOSE. [Concomitant]
     Active Substance: LACTULOSE
  5. SOFOSBUVIR [Suspect]
     Active Substance: SOFOSBUVIR
     Indication: CHRONIC HEPATITIS C
     Dosage: 400 MG, UNK
     Route: 065
     Dates: start: 20150519, end: 20150803
  6. FUROSEMIDE. [Suspect]
     Active Substance: FUROSEMIDE
     Indication: FLUID OVERLOAD
     Dosage: 40 MG, BID
     Route: 065
  7. PROPOFOL. [Concomitant]
     Active Substance: PROPOFOL
  8. PANTOPRAZOLE [Concomitant]
     Active Substance: PANTOPRAZOLE SODIUM
     Dosage: UNK
  9. DIAMICRON [Concomitant]
     Active Substance: GLICLAZIDE
  10. FENTANYL. [Concomitant]
     Active Substance: FENTANYL
  11. RECTOGESIC OINTMENT [Concomitant]
  12. ACETYL CYSTEINE SENJU [Concomitant]

REACTIONS (11)
  - Multi-organ failure [Fatal]
  - Ascites [Unknown]
  - Septic shock [Fatal]
  - Pneumonia [Fatal]
  - Fluid overload [Unknown]
  - Encephalopathy [Unknown]
  - Rectal haemorrhage [Fatal]
  - Hepatic failure [Unknown]
  - Respiratory failure [Unknown]
  - Acute kidney injury [Unknown]
  - Haemorrhagic anaemia [Unknown]

NARRATIVE: CASE EVENT DATE: 201506
